FAERS Safety Report 4344354-3 (Version None)
Quarter: 2004Q2

REPORT INFORMATION
  Report Type: 
  Country: None (occurrence: None)
  Receive Date: 20040420
  Receipt Date: 20040407
  Transmission Date: 20050107
  Serious: Yes (Other)
  Sender: FDA-Public Use
  Company Number: 2004199400AU

PATIENT
  Age: 34 Year
  Sex: Male
  Weight: 84 kg

DRUGS (2)
  1. CELEBREX [Suspect]
     Indication: SERONEGATIVE ARTHRITIS
     Dosage: 100 MG, BID, ORAL
     Route: 048
     Dates: start: 20020313, end: 20031201
  2. METHOTREXATE [Concomitant]

REACTIONS (1)
  - NOCTURIA [None]
